FAERS Safety Report 20547042 (Version 1)
Quarter: 2022Q1

REPORT INFORMATION
  Report Type: Other
  Country: BE (occurrence: None)
  Receive Date: 20220303
  Receipt Date: 20220303
  Transmission Date: 20220423
  Serious: Yes (Death, Other)
  Sender: FDA-Public Use
  Company Number: BE-Neopharma Inc-000388

PATIENT
  Sex: Male

DRUGS (8)
  1. IRINOTECAN [Suspect]
     Active Substance: IRINOTECAN
     Indication: Colorectal cancer metastatic
     Dosage: 200 MG TOTAL EVERY 4 WEEKS. ARTERIAL EMBOLIZATION THROUGH LOBAR INFUSION
  2. SODIUM CHLORIDE [Concomitant]
     Active Substance: SODIUM CHLORIDE
     Indication: Postoperative care
     Dosage: IV HYDRATION WITH 2L OF 0.9% SODIUM CHLORIDE OVER 24 H
     Route: 042
  3. LIDOCAINE [Concomitant]
     Active Substance: LIDOCAINE
     Indication: Product used for unknown indication
     Dosage: LIDOCAINE 1% 2.5-5 MG IV
     Route: 042
  4. DEXAMETHASONE [Concomitant]
     Active Substance: DEXAMETHASONE
     Indication: Postoperative care
     Dosage: 4 - 8 MG IV OR EQUIVALENT
     Route: 042
  5. PIRITRAMIDE [Concomitant]
     Active Substance: PIRITRAMIDE
     Indication: Postoperative care
     Dosage: 0.05-0.1 MG/KG
     Route: 042
  6. ATROPINE [Concomitant]
     Active Substance: ATROPINE
     Indication: Preoperative care
     Dosage: ATROPINE IV BOLUS
     Route: 040
  7. SODIUM CHLORIDE [Concomitant]
     Active Substance: SODIUM CHLORIDE
     Indication: Preoperative care
     Dosage: 2 L OF 0.9% SODIUM CHLORIDE IV OVER 24 H
     Route: 042
  8. DEXAMETHASONE [Concomitant]
     Active Substance: DEXAMETHASONE
     Indication: Preoperative care
     Dosage: 4 - 8 MG IV OR EQUIVALENT
     Route: 042

REACTIONS (2)
  - Pancreatitis necrotising [Fatal]
  - Constipation [Not Recovered/Not Resolved]
